FAERS Safety Report 6550895-0 (Version None)
Quarter: 2010Q1

REPORT INFORMATION
  Report Type: 
  Country: None (occurrence: None)
  Receive Date: 20100125
  Receipt Date: 20100111
  Transmission Date: 20100710
  Serious: Yes (Hospitalization, Congenital Anomaly)
  Sender: FDA-Public Use
  Company Number: AU-MYLANLABS-2010S1000418

PATIENT
  Sex: Male

DRUGS (1)
  1. VALPROIC ACID [Suspect]
     Indication: GRAND MAL CONVULSION
     Dosage: 1000 MG/DAY
     Route: 064

REACTIONS (2)
  - DRUG EXPOSURE DURING PREGNANCY [None]
  - PULMONARY APLASIA [None]
